FAERS Safety Report 7105367-1 (Version None)
Quarter: 2010Q4

REPORT INFORMATION
  Report Type: 
  Country: None (occurrence: None)
  Receive Date: 20101108
  Receipt Date: 20101028
  Transmission Date: 20110411
  Serious: Yes (Hospitalization)
  Sender: FDA-Public Use
  Company Number: 2010US004479

PATIENT
  Age: 59 Year
  Sex: Male

DRUGS (4)
  1. PROGRAF [Suspect]
     Indication: LIVER TRANSPLANT
     Dosage: 1 MG, BID,
     Dates: start: 20000502
  2. LASIX [Concomitant]
  3. COUMADIN [Concomitant]
  4. DIOVAN [Concomitant]

REACTIONS (1)
  - CARDIAC DISORDER [None]
